FAERS Safety Report 18033982 (Version 3)
Quarter: 2021Q1

REPORT INFORMATION
  Report Type: Spontaneous
  Country: US (occurrence: US)
  Receive Date: 20200716
  Receipt Date: 20210215
  Transmission Date: 20210419
  Serious: No
  Sender: FDA-Public Use
  Company Number: US-ASTRAZENECA-2020SE89035

PATIENT
  Age: 64 Year
  Sex: Male
  Weight: 131.5 kg

DRUGS (13)
  1. BYDUREON [Suspect]
     Active Substance: EXENATIDE
     Indication: DIABETES MELLITUS
     Route: 058
     Dates: start: 2018
  2. CRESTOR [Suspect]
     Active Substance: ROSUVASTATIN CALCIUM
     Indication: ILL-DEFINED DISORDER
     Route: 048
  3. METOPOLOL [Suspect]
     Active Substance: METOPROLOL
     Indication: CARDIAC DISORDER
     Dosage: TWO TIMES A DAY
     Route: 065
  4. HYDROCHLORATHIAZIDE [Concomitant]
     Active Substance: HYDROCHLOROTHIAZIDE
     Indication: ILL-DEFINED DISORDER
     Route: 065
  5. VITAMIN D3 [Concomitant]
     Active Substance: CHOLECALCIFEROL
     Indication: ILL-DEFINED DISORDER
     Route: 065
  6. LISINPRIL [Concomitant]
     Indication: ILL-DEFINED DISORDER
     Route: 048
  7. MULTIVITAMIN [Concomitant]
     Active Substance: VITAMINS
     Indication: ILL-DEFINED DISORDER
     Route: 065
  8. ADIPEX [Concomitant]
     Active Substance: PHENTERMINE
  9. GLIPERIDE [Concomitant]
     Active Substance: GLIMEPIRIDE
     Indication: DIABETES MELLITUS
     Dosage: TWO TIMES A DAY
     Route: 048
  10. METFORMIN [Concomitant]
     Active Substance: METFORMIN HYDROCHLORIDE
     Indication: DIABETES MELLITUS
     Dosage: TWO TIMES A DAY
     Route: 065
  11. TURMERIC [Concomitant]
     Active Substance: HERBALS\TURMERIC
     Indication: ILL-DEFINED DISORDER
     Route: 065
  12. FISH OIL [Concomitant]
     Active Substance: FISH OIL
     Indication: ILL-DEFINED DISORDER
     Dosage: PILLS
     Route: 048
  13. TEA [Concomitant]
     Active Substance: TEA LEAF
     Dosage: PILLS

REACTIONS (5)
  - Device leakage [Unknown]
  - Weight decreased [Unknown]
  - Glycosylated haemoglobin increased [Unknown]
  - Device failure [Unknown]
  - Incorrect dose administered by device [Unknown]

NARRATIVE: CASE EVENT DATE: 2020
